FAERS Safety Report 8362680-8 (Version None)
Quarter: 2012Q2

REPORT INFORMATION
  Report Type: 
  Country: None (occurrence: None)
  Receive Date: 20120516
  Receipt Date: 20110715
  Transmission Date: 20120825
  Serious: No
  Sender: FDA-Public Use
  Company Number: US-MYLANLABS-2011S1014895

PATIENT
  Age: 53 Year
  Sex: Female

DRUGS (4)
  1. XANAX [Concomitant]
  2. BUPROPION HYDROCHLORIDE [Suspect]
     Indication: DEPRESSION
     Route: 048
     Dates: start: 20110328, end: 20110501
  3. RITALIN [Concomitant]
     Indication: ATTENTION DEFICIT/HYPERACTIVITY DISORDER
  4. NAVANE [Concomitant]

REACTIONS (3)
  - CONFUSIONAL STATE [None]
  - THINKING ABNORMAL [None]
  - FEELING ABNORMAL [None]
